FAERS Safety Report 4577488-9 (Version None)
Quarter: 2005Q1

REPORT INFORMATION
  Report Type: 
  Country: None (occurrence: None)
  Receive Date: 20050208
  Receipt Date: 20050125
  Transmission Date: 20050727
  Serious: Yes (Life-Threatening, Other)
  Sender: FDA-Public Use
  Company Number: 2004097663

PATIENT
  Age: 61 Year
  Sex: Male
  Weight: 96.1626 kg

DRUGS (7)
  1. CELEBREX [Suspect]
     Indication: ARTHRITIS
     Dosage: (200 MG, PRN), ORAL
     Route: 048
     Dates: start: 20020101
  2. NIFEDIPINE [Concomitant]
  3. ALLOPURINOL [Concomitant]
  4. RAMIPRIL [Concomitant]
  5. ACETYLSALICYLIC ACID SRT [Concomitant]
  6. FUROSEMIDE (FUROSEMIDE) [Concomitant]
  7. NADOLOL [Concomitant]

REACTIONS (2)
  - ANAPHYLACTIC REACTION [None]
  - CIRCULATORY COLLAPSE [None]
